FAERS Safety Report 7990302-4 (Version None)
Quarter: 2011Q4

REPORT INFORMATION
  Report Type: 
  Country: None (occurrence: None)
  Receive Date: 20111219
  Receipt Date: 20110404
  Transmission Date: 20120403
  Serious: No
  Sender: FDA-Public Use
  Company Number: US-ASTRAZENECA-2011SE18828

PATIENT
  Age: 73 Year
  Sex: Female
  Weight: 90.7 kg

DRUGS (7)
  1. EMIPRAMIDE [Concomitant]
  2. DEPLIN [Concomitant]
  3. CRESTOR [Suspect]
     Route: 048
     Dates: start: 20110301
  4. AMERYL [Concomitant]
  5. BENECAR [Concomitant]
  6. POTASSIUM CHLORIDE [Concomitant]
  7. OMEPRAZOLE [Concomitant]

REACTIONS (1)
  - DRY MOUTH [None]
